FAERS Safety Report 23268270 (Version 2)
Quarter: 2024Q1

REPORT INFORMATION
  Report Type: Spontaneous
  Country: US (occurrence: US)
  Receive Date: 20231206
  Receipt Date: 20240301
  Transmission Date: 20240410
  Serious: Yes (Hospitalization, Other)
  Sender: FDA-Public Use
  Company Number: US-SA-SAC20231016000934

PATIENT

DRUGS (1)
  1. LARONIDASE [Suspect]
     Active Substance: LARONIDASE
     Indication: Mucopolysaccharidosis I
     Dosage: 52.2 (UNITS UNSPECIFIED), QOW
     Route: 042
     Dates: start: 20030619

REACTIONS (4)
  - Vascular device infection [Not Recovered/Not Resolved]
  - Mitral valve repair [Not Recovered/Not Resolved]
  - Post procedural contusion [Not Recovered/Not Resolved]
  - Sternotomy [Not Recovered/Not Resolved]
